FAERS Safety Report 8477169-5 (Version None)
Quarter: 2012Q2

REPORT INFORMATION
  Report Type: 
  Country: None (occurrence: None)
  Receive Date: 20120625
  Receipt Date: 20120625
  Transmission Date: 20120825
  Serious: No
  Sender: FDA-Public Use
  Company Number: None

PATIENT
  Sex: Male

DRUGS (1)
  1. RIBAVIRIN [Suspect]
     Dosage: 200 MG SC TAKE 3 CAPSULES EVERY MORNING AND EVERY EVENING BY MOUTH (1200MG TOTAL DAILY DOSE) AS DIRE
     Route: 058

REACTIONS (1)
  - THROAT TIGHTNESS [None]
